FAERS Safety Report 9935323 (Version 2)
Quarter: 2014Q1

REPORT INFORMATION
  Report Type: Spontaneous
  Country: DE (occurrence: DE)
  Receive Date: 20140228
  Receipt Date: 20140304
  Transmission Date: 20141002
  Serious: Yes (Other)
  Sender: FDA-Public Use
  Company Number: DE-PFIZER INC-2014055535

PATIENT
  Age: 34 Year
  Sex: Male

DRUGS (2)
  1. METHYLPREDNISOLONE [Suspect]
     Indication: IMMUNOSUPPRESSION
     Dosage: 500 MG FOR 3 DAYS
     Route: 042
  2. CYCLOPHOSPHAMIDE [Suspect]
     Indication: IMMUNOSUPPRESSION
     Dosage: 0.5 G TWICE WITHIN TWO MONTHS
     Route: 042

REACTIONS (2)
  - Aspergillus infection [Unknown]
  - Drug ineffective [Unknown]
